FAERS Safety Report 4965106-7 (Version None)
Quarter: 2006Q1

REPORT INFORMATION
  Report Type: 
  Country: None (occurrence: None)
  Receive Date: 20060201
  Receipt Date: 20051002
  Transmission Date: 20060701
  Serious: No
  Sender: FDA-Public Use
  Company Number: 2005PV002775

PATIENT
  Age: 28 Year
  Sex: Female
  Weight: 78.0187 kg

DRUGS (4)
  1. BYETTA [Suspect]
     Indication: DIABETES MELLITUS NON-INSULIN-DEPENDENT
     Dosage: 5 MG BID SC
     Route: 058
     Dates: start: 20050923
  2. METFORMIN [Concomitant]
  3. PROTONIX [Concomitant]
  4. FLINTSTONES MULTIPLE VITAMINS [Concomitant]

REACTIONS (5)
  - DYSPEPSIA [None]
  - HYPOAESTHESIA [None]
  - NAUSEA [None]
  - STOMACH DISCOMFORT [None]
  - VOMITING [None]
